FAERS Safety Report 10373944 (Version 1)
Quarter: 2014Q1

REPORT INFORMATION
  Report Type: Spontaneous
  Country: US (occurrence: None)
  Receive Date: 20140306
  Receipt Date: 20140306
  Transmission Date: 20141002
  Serious: Yes (Other)
  Sender: FDA-Public Use
  Company Number: 163-21880-13013979

PATIENT
  Age: 69 Year
  Sex: Male

DRUGS (6)
  1. REVLIMID (LENALIDOMIDE) (CAPSULES) [Suspect]
     Indication: PLASMA CELL MYELOMA
     Dosage: 15 MG, 21 IN 28 D, PO
     Route: 048
     Dates: start: 20120123
  2. ARANESP [Suspect]
     Indication: NEPHROGENIC ANAEMIA
     Dosage: 200 UG, 1 IN 2 WK, SC
     Dates: start: 20121004, end: 20121025
  3. ZEMPLAR (PARICALCITOL) [Concomitant]
  4. VELCADE (BORTEZOMIB) [Concomitant]
  5. AMOXICILLIN [Concomitant]
  6. COUMADIN (WARFARIN SODIUM) [Concomitant]

REACTIONS (4)
  - Renal failure [None]
  - Anaemia [None]
  - Rash macular [None]
  - Rash pruritic [None]
